FAERS Safety Report 12832370 (Version 1)
Quarter: 2016Q4

REPORT INFORMATION
  Report Type: Spontaneous
  Country: US (occurrence: US)
  Receive Date: 20161010
  Receipt Date: 20161010
  Transmission Date: 20170207
  Serious: No
  Sender: FDA-Public Use
  Company Number: US-JAZZ-2016-US-012983

PATIENT
  Sex: Female

DRUGS (21)
  1. XYREM [Suspect]
     Active Substance: SODIUM OXYBATE
     Dosage: 4.5 G, BID
     Route: 048
     Dates: start: 201203
  2. DEPLIN [Concomitant]
     Active Substance: LEVOMEFOLATE CALCIUM
  3. VALIUM [Concomitant]
     Active Substance: DIAZEPAM
  4. PROMETHAZINE [Concomitant]
     Active Substance: PROMETHAZINE\PROMETHAZINE HYDROCHLORIDE
  5. XYREM [Suspect]
     Active Substance: SODIUM OXYBATE
     Indication: NARCOLEPSY
     Dosage: 1.5 G, BID
     Route: 048
     Dates: start: 201103, end: 201104
  6. TRAZODONE HYDROCHLORIDE. [Concomitant]
     Active Substance: TRAZODONE HYDROCHLORIDE
  7. MULTIVITAMIN [Concomitant]
     Active Substance: VITAMINS
  8. QUETIAPINE FUMARATE. [Concomitant]
     Active Substance: QUETIAPINE FUMARATE
  9. AMBIEN [Concomitant]
     Active Substance: ZOLPIDEM TARTRATE
  10. PEPCID AC [Concomitant]
     Active Substance: FAMOTIDINE
  11. GABAPENTIN. [Concomitant]
     Active Substance: GABAPENTIN
  12. KLONOPIN [Concomitant]
     Active Substance: CLONAZEPAM
  13. ZOLPIDEM TARTRATE. [Concomitant]
     Active Substance: ZOLPIDEM TARTRATE
  14. XYREM [Suspect]
     Active Substance: SODIUM OXYBATE
     Indication: CATAPLEXY
     Dosage: 3.75 G, BID
     Route: 048
     Dates: start: 201104, end: 201203
  15. DEXILANT DR [Concomitant]
  16. VITAMIN D [Concomitant]
     Active Substance: CHOLECALCIFEROL
  17. PLEXUS PROBIOTIC [Concomitant]
  18. LYRICA [Concomitant]
     Active Substance: PREGABALIN
  19. SINGULAIR [Concomitant]
     Active Substance: MONTELUKAST SODIUM
  20. PROMETRIUM [Concomitant]
     Active Substance: PROGESTERONE
  21. VITAMIN D3 [Concomitant]
     Active Substance: CHOLECALCIFEROL

REACTIONS (3)
  - Therapeutic response unexpected [Unknown]
  - Pre-existing condition improved [Unknown]
  - Insomnia [Unknown]
